FAERS Safety Report 16030101 (Version 1)
Quarter: 2019Q1

REPORT INFORMATION
  Report Type: Spontaneous
  Country: GR (occurrence: GR)
  Receive Date: 20190304
  Receipt Date: 20190304
  Transmission Date: 20190418
  Serious: Yes (Other)
  Sender: FDA-Public Use
  Company Number: GR-AMGEN-GRCSP2019031657

PATIENT
  Age: 77 Year
  Sex: Female

DRUGS (11)
  1. ADRIAMYCIN [Concomitant]
     Active Substance: DOXORUBICIN HYDROCHLORIDE
     Dosage: UNK, THREE CYCLES
     Dates: start: 201701, end: 201703
  2. CYCLOPHOSPHAMIDE. [Concomitant]
     Active Substance: CYCLOPHOSPHAMIDE
     Dosage: UNK. THREE CYCLES
     Dates: start: 201701, end: 201703
  3. XGEVA [Suspect]
     Active Substance: DENOSUMAB
     Indication: BONE DISORDER
     Dosage: UNK
     Route: 065
  4. XELODA [Concomitant]
     Active Substance: CAPECITABINE
     Dosage: 500 MG, D1-14, Q21D
     Dates: start: 20171103, end: 20181101
  5. XGEVA [Suspect]
     Active Substance: DENOSUMAB
     Dosage: UNK UNK, QWK
     Route: 065
     Dates: start: 201602, end: 201607
  6. XGEVA [Suspect]
     Active Substance: DENOSUMAB
     Dosage: UNK
     Route: 065
     Dates: start: 201607
  7. PACLITAXEL. [Concomitant]
     Active Substance: PACLITAXEL
     Dosage: UNK UNK, QWK
     Dates: start: 201602, end: 201607
  8. ABRAXANE [Concomitant]
     Active Substance: PACLITAXEL
     Dosage: 220 MG/M2, UNK
     Route: 042
     Dates: start: 20170331
  9. PALBOCICLIB [Concomitant]
     Active Substance: PALBOCICLIB
     Dosage: UNK
     Dates: start: 20181121
  10. FEMARA [Concomitant]
     Active Substance: LETROZOLE
     Indication: BONE DISORDER
  11. FASLODEX [Concomitant]
     Active Substance: FULVESTRANT
     Dosage: UNK
     Dates: start: 201607, end: 201701

REACTIONS (3)
  - Invasive lobular breast carcinoma [Unknown]
  - Neutropenia [Unknown]
  - Pleural effusion [Unknown]
